FAERS Safety Report 13724472 (Version 1)
Quarter: 2017Q3

REPORT INFORMATION
  Report Type: Spontaneous
  Country: FR (occurrence: FR)
  Receive Date: 20170706
  Receipt Date: 20170706
  Transmission Date: 20171127
  Serious: Yes (Hospitalization)
  Sender: FDA-Public Use
  Company Number: FR-PFIZER INC-2017287056

PATIENT
  Age: 68 Year
  Sex: Male
  Weight: 140 kg

DRUGS (1)
  1. ZYVOXID [Suspect]
     Active Substance: LINEZOLID
     Indication: BACTERIAL INFECTION
     Dosage: 600 MG, 2X/DAY
     Route: 042
     Dates: start: 20170616, end: 20170618

REACTIONS (2)
  - Blister [Recovered/Resolved]
  - Nikolsky^s sign [Recovered/Resolved]

NARRATIVE: CASE EVENT DATE: 20170617
